FAERS Safety Report 9321454 (Version 1)
Quarter: 2013Q2

REPORT INFORMATION
  Report Type: Spontaneous
  Country: FR (occurrence: FR)
  Receive Date: 20130531
  Receipt Date: 20130531
  Transmission Date: 20140414
  Serious: Yes (Hospitalization)
  Sender: FDA-Public Use
  Company Number: FR-PERRIGO-13FR005542

PATIENT
  Age: 15 Year
  Sex: Female
  Weight: 69.6 kg

DRUGS (4)
  1. IBUPROFEN 200 MG 604 [Suspect]
     Indication: INTENTIONAL OVERDOSE
     Dosage: 2 G, SINGLE
     Route: 048
  2. ACETAMINOPHEN 650MG ER 544 [Suspect]
     Indication: INTENTIONAL OVERDOSE
     Dosage: 8 G, SINGLE
     Route: 048
  3. NAPROXEN SODIUM 220 MG 368 [Suspect]
     Indication: INTENTIONAL OVERDOSE
     Dosage: 4.4 G, SINGLE
     Route: 048
  4. PSEUDOEPHEDRINE HYDROCHLORIDE 12 HOUR 120 MG 054 [Suspect]
     Indication: INTENTIONAL OVERDOSE
     Dosage: 300 MG, SINGLE
     Route: 048

REACTIONS (2)
  - Renal failure [Recovered/Resolved]
  - Intentional overdose [Recovered/Resolved]
